FAERS Safety Report 9296173 (Version 2)
Quarter: 2013Q2

REPORT INFORMATION
  Report Type: Spontaneous
  Country: DE (occurrence: None)
  Receive Date: 20130514
  Receipt Date: 20130521
  Transmission Date: 20140414
  Serious: Yes (Hospitalization)
  Sender: FDA-Public Use
  Company Number: GER/GER/13/0029469

PATIENT
  Age: 38 Year
  Sex: Female

DRUGS (2)
  1. IBUPROFEN (IBUPROFEN) [Suspect]
     Indication: FEAR
     Route: 048
  2. IBUPROFEN (IBUPROFEN) [Suspect]
     Indication: ARTHRALGIA
     Route: 048

REACTIONS (8)
  - Oliguria [None]
  - Dyspnoea [None]
  - Haematuria [None]
  - Cardiovascular disorder [None]
  - Gastrointestinal disorder [None]
  - Renal disorder [None]
  - Hyperkalaemia [None]
  - Proteinuria [None]
